FAERS Safety Report 6133592-5 (Version None)
Quarter: 2009Q1

REPORT INFORMATION
  Report Type: 
  Country: None (occurrence: None)
  Receive Date: 20090324
  Receipt Date: 20090317
  Transmission Date: 20090719
  Serious: Yes (Life-Threatening, Disabling)
  Sender: FDA-Public Use
  Company Number: 2009AL001575

PATIENT
  Age: 34 Year
  Sex: Male

DRUGS (2)
  1. FLUOXETINE [Suspect]
     Indication: DEPRESSION
     Dosage: 20 MG; PO
     Route: 048
     Dates: start: 20081204
  2. AMITRIPTYLINE [Concomitant]

REACTIONS (1)
  - EPILEPSY [None]
